FAERS Safety Report 16201762 (Version 1)
Quarter: 2019Q2

REPORT INFORMATION
  Report Type: Spontaneous
  Country: US (occurrence: US)
  Receive Date: 20190415
  Receipt Date: 20190415
  Transmission Date: 20190711
  Serious: No
  Sender: FDA-Public Use
  Company Number: None

PATIENT
  Sex: Male

DRUGS (1)
  1. PRASUGREL. [Suspect]
     Active Substance: PRASUGREL

REACTIONS (2)
  - Adverse drug reaction [None]
  - Malaise [None]
